FAERS Safety Report 5592906-5 (Version None)
Quarter: 2008Q1

REPORT INFORMATION
  Report Type: 
  Country: None (occurrence: None)
  Receive Date: 20080116
  Receipt Date: 20080104
  Transmission Date: 20080703
  Serious: Yes (Other)
  Sender: FDA-Public Use
  Company Number: CA-AMGEN-QUU259403

PATIENT
  Sex: Female

DRUGS (2)
  1. ENBREL [Suspect]
     Indication: RHEUMATOID ARTHRITIS
     Route: 058
     Dates: start: 20071201
  2. PREDNISONE TAB [Concomitant]
     Dates: start: 20070101

REACTIONS (4)
  - INJECTION SITE BRUISING [None]
  - INJECTION SITE PRURITUS [None]
  - JOINT SWELLING [None]
  - PERICARDIAL EFFUSION [None]
